FAERS Safety Report 16001266 (Version 1)
Quarter: 2019Q1

REPORT INFORMATION
  Report Type: Spontaneous
  Country: US (occurrence: US)
  Receive Date: 20190224
  Receipt Date: 20190224
  Transmission Date: 20190418
  Serious: No
  Sender: FDA-Public Use
  Company Number: None

PATIENT
  Age: 15 Month
  Sex: Female
  Weight: 16.2 kg

DRUGS (1)
  1. EQUATE IBUPROFEN CHILDRENS [Suspect]
     Active Substance: IBUPROFEN
     Indication: TOOTHACHE
     Dosage: ?          QUANTITY:5 ML;?
     Dates: start: 20190221, end: 20190224

REACTIONS (3)
  - Diarrhoea [None]
  - Abdominal pain upper [None]
  - Recalled product administered [None]

NARRATIVE: CASE EVENT DATE: 20190222
